FAERS Safety Report 10403435 (Version 1)
Quarter: 2014Q3

REPORT INFORMATION
  Report Type: Report from Study
  Country: FR (occurrence: FR)
  Receive Date: 20140822
  Receipt Date: 20140822
  Transmission Date: 20150326
  Serious: Yes (Other)
  Sender: FDA-Public Use
  Company Number: FR-MYLAN-2014M1002022

PATIENT

DRUGS (2)
  1. CYTARABINE. [Suspect]
     Active Substance: CYTARABINE
     Indication: ACUTE MYELOID LEUKAEMIA
     Dosage: 18 MG, QD
     Route: 042
     Dates: start: 20080813, end: 20080817
  2. MITOXANTRONE [Suspect]
     Active Substance: MITOXANTRONE HYDROCHLORIDE
     Indication: ACUTE MYELOID LEUKAEMIA
     Dosage: 42 MG, QD
     Route: 042
     Dates: start: 20080813, end: 20080814

REACTIONS (2)
  - Bone marrow failure [Recovered/Resolved]
  - Bone marrow failure [None]

NARRATIVE: CASE EVENT DATE: 20080820
